FAERS Safety Report 5753106-9 (Version None)
Quarter: 2008Q2

REPORT INFORMATION
  Report Type: 
  Country: None (occurrence: None)
  Receive Date: 20080530
  Receipt Date: 20080526
  Transmission Date: 20081010
  Serious: Yes (Other)
  Sender: FDA-Public Use
  Company Number: US-RANBAXY-2008RR-15408

PATIENT

DRUGS (25)
  1. ASPIRIN [Suspect]
  2. CLOPIDOGREL [Suspect]
  3. FLUNISOLIDE [Suspect]
  4. ALBUTEROL [Suspect]
  5. IPRATROPIUM BROMIDE [Suspect]
  6. MOMETASONE FUROATE [Suspect]
  7. DENEZEPIL [Suspect]
     Dosage: 10 MG, UNK
  8. CYPROHEPTADINE HCL [Suspect]
     Dosage: 4 MG, QD
  9. FAMOTIDINE [Suspect]
     Dosage: 40 MG, QD
  10. FUROSEMIDE [Suspect]
     Dosage: 20 MG, 3/WEEK
  11. ISOSORBIDE MONONITRATE [Suspect]
     Dosage: 15 MG, QD
  12. LISINOPRIL [Suspect]
     Dosage: 2.5 MG, QD
  13. MAGNESIUM GLUCONATE [Suspect]
     Dosage: 500 MG, QD
  14. METOCLOPRAMIDE [Suspect]
     Dosage: 10 MG, QID
  15. METOPROLOL COMPRIMATE 100MG [Suspect]
     Dosage: 75 MG, QD
  16. SERTRALINE HYDROCHLORIDE [Suspect]
     Dosage: 75 MG, QD
  17. NITROGLYCERIN [Suspect]
     Dosage: 0.4 MG, PRN
     Route: 060
  18. SIMVASTATIN [Suspect]
     Dosage: 40 MG, QD
  19. MODAFINIL [Suspect]
     Indication: APATHY
     Dosage: 200 MG, UNK
  20. MODAFINIL [Suspect]
     Indication: FATIGUE
  21. LEVETIRACETAM [Suspect]
     Indication: CONVULSION
     Dosage: 1000 MG, BID
  22. LEVETIRACETAM [Suspect]
     Dosage: 500 MG, BID
  23. GLIPIZIDE [Suspect]
  24. ISOPHANE INSULIN [Suspect]
     Dosage: UNK
  25. INSULIN ASPART [Suspect]

REACTIONS (3)
  - ANOREXIA [None]
  - DEHYDRATION [None]
  - NAUSEA [None]
